FAERS Safety Report 4745471-6 (Version None)
Quarter: 2005Q3

REPORT INFORMATION
  Report Type: 
  Country: None (occurrence: None)
  Receive Date: 20050811
  Receipt Date: 20050803
  Transmission Date: 20060218
  Serious: Yes (Other)
  Sender: FDA-Public Use
  Company Number: 2005110899

PATIENT
  Age: 54 Year
  Weight: 56.246 kg

DRUGS (2)
  1. ZITHROMAX [Suspect]
     Indication: SINUSITIS
     Dosage: ORAL
     Route: 048
     Dates: start: 20050705
  2. ZYRTEC [Concomitant]

REACTIONS (1)
  - ANOSMIA [None]
